FAERS Safety Report 5190217-3 (Version None)
Quarter: 2006Q4

REPORT INFORMATION
  Report Type: 
  Country: None (occurrence: None)
  Receive Date: 20061222
  Receipt Date: 20061024
  Transmission Date: 20070319
  Serious: No
  Sender: FDA-Public Use
  Company Number: US-AMGEN-US197922

PATIENT
  Sex: Male

DRUGS (8)
  1. ARANESP [Suspect]
     Indication: ANAEMIA
     Route: 058
     Dates: start: 20060101
  2. HERBAL SUPPLEMENT [Concomitant]
  3. PROGRAF [Concomitant]
  4. CELLCEPT [Concomitant]
  5. OXYBUTYNIN [Concomitant]
  6. IRON [Concomitant]
  7. TUMS [Concomitant]
  8. MEGESTROL ACETATE [Concomitant]

REACTIONS (1)
  - HAEMATOCRIT DECREASED [None]
